FAERS Safety Report 9678412 (Version 2)
Quarter: 2014Q1

REPORT INFORMATION
  Report Type: Spontaneous
  Country: US (occurrence: US)
  Receive Date: 20131108
  Receipt Date: 20140312
  Transmission Date: 20141002
  Serious: Yes (Hospitalization)
  Sender: FDA-Public Use
  Company Number: US-B.I. PHARMACEUTICALS,INC./RIDGEFIELD-2013-BI-34935BP

PATIENT
  Sex: Male
  Weight: 95.2 kg

DRUGS (4)
  1. PRADAXA [Suspect]
     Indication: ATRIAL FIBRILLATION
     Dosage: 300 MG
     Route: 065
     Dates: start: 20120301, end: 20120305
  2. CARDIZEM CD [Concomitant]
     Dosage: 240 MG
     Route: 065
  3. FLOMAX [Concomitant]
     Dosage: 0.4 MG
     Route: 065
  4. MOTRIN [Concomitant]
     Dosage: 1600 MG
     Route: 065

REACTIONS (3)
  - Mesenteric haemorrhage [Unknown]
  - Haematoma [Unknown]
  - Peritoneal haemorrhage [Unknown]
